FAERS Safety Report 9114833 (Version 1)
Quarter: 2013Q1

REPORT INFORMATION
  Report Type: Spontaneous
  Country: KR (occurrence: KR)
  Receive Date: 20130208
  Receipt Date: 20130208
  Transmission Date: 20140127
  Serious: Yes (Death, Hospitalization)
  Sender: FDA-Public Use
  Company Number: KR-PFIZER INC-2012128544

PATIENT
  Age: 55 Year
  Sex: Female
  Weight: 53 kg

DRUGS (4)
  1. AROMASIN [Suspect]
     Indication: BREAST CANCER
     Dosage: 25 MG, 1X/DAY
     Route: 048
     Dates: start: 20110723, end: 20120124
  2. CILNIDIPINE [Concomitant]
     Indication: HYPERTENSION
     Dosage: UNK
     Route: 048
     Dates: start: 2006, end: 20120124
  3. BIPHENYL DIMETHYL DICARBOXYLATE [Concomitant]
     Indication: HEPATITIS
     Dosage: UNK
     Route: 048
     Dates: start: 20111123, end: 20120124
  4. PITAVASTATIN [Concomitant]
     Indication: HYPERLIPIDAEMIA
     Dosage: UNK
     Route: 048
     Dates: start: 2010, end: 20120124

REACTIONS (1)
  - Hepatic failure [Fatal]
